FAERS Safety Report 5853563-3 (Version None)
Quarter: 2008Q3

REPORT INFORMATION
  Report Type: 
  Country: None (occurrence: None)
  Receive Date: 20080822
  Receipt Date: 20080819
  Transmission Date: 20090109
  Serious: Yes (Other)
  Sender: FDA-Public Use
  Company Number: PL-BRISTOL-MYERS SQUIBB COMPANY-14308175

PATIENT
  Age: 83 Year
  Sex: Male
  Weight: 50 kg

DRUGS (6)
  1. MEGACE [Suspect]
     Indication: NEOPLASM MALIGNANT
     Dosage: FREQUENCY 1X
     Route: 048
     Dates: start: 20080101, end: 20080725
  2. DURAGESIC-100 [Concomitant]
  3. LERIVON [Concomitant]
  4. PRESTARIUM [Concomitant]
  5. FUROSEMIDE [Concomitant]
  6. KALIPOZ [Concomitant]

REACTIONS (1)
  - DEEP VEIN THROMBOSIS [None]
